FAERS Safety Report 16410076 (Version 1)
Quarter: 2019Q2

REPORT INFORMATION
  Report Type: Spontaneous
  Country: US (occurrence: US)
  Receive Date: 20190502
  Receipt Date: 20190502
  Transmission Date: 20190711
  Serious: No
  Sender: FDA-Public Use
  Company Number: None

PATIENT
  Age: 89 Year
  Sex: Female
  Weight: 68.04 kg

DRUGS (7)
  1. CRANBERRY. [Concomitant]
     Active Substance: CRANBERRY
  2. LUTEIN [Concomitant]
     Active Substance: LUTEIN
  3. CALCIUM [Concomitant]
     Active Substance: CALCIUM
  4. LOSARTAN POTASSIUM TABLETS, 25 MG [Suspect]
     Active Substance: LOSARTAN POTASSIUM
     Indication: BLOOD PRESSURE MEASUREMENT
     Dosage: ?          QUANTITY:1 DF DOSAGE FORM;?
     Route: 048
     Dates: start: 20190120, end: 20190222
  5. LALANOPROST EYE DROPS [Concomitant]
  6. LISNOPRIL [Concomitant]
  7. VITAMIN D3 [Concomitant]
     Active Substance: CHOLECALCIFEROL

REACTIONS (1)
  - Contusion [None]

NARRATIVE: CASE EVENT DATE: 20190221
